FAERS Safety Report 5003946-9 (Version None)
Quarter: 2006Q2

REPORT INFORMATION
  Report Type: 
  Country: None (occurrence: None)
  Receive Date: 20060515
  Receipt Date: 20060515
  Transmission Date: 20061013
  Serious: Yes (Life-Threatening)
  Sender: FDA-Public Use
  Company Number: None

PATIENT
  Age: 63 Year
  Sex: Female
  Weight: 73 kg

DRUGS (11)
  1. MORPHINE [Suspect]
     Indication: AORTIC VALVE REPAIR
     Dosage: 4 MG   EVERY 1 HOUR PRN  IVP
     Route: 042
     Dates: start: 20060208, end: 20060209
  2. OXYCODONE 5MG [Suspect]
     Dosage: 5MG  EVERY 3 HOURS  ORAL
     Route: 048
     Dates: start: 20060209, end: 20060210
  3. AMITRYPTLINE [Concomitant]
  4. ASPIRIN [Concomitant]
  5. DILTIAZEM [Concomitant]
  6. DOCUSATE [Concomitant]
  7. NEXIUM [Concomitant]
  8. FUROSEMIDE [Concomitant]
  9. HEPARIN [Concomitant]
  10. METOPROLOL TARTRATE [Concomitant]
  11. COUMADIN [Concomitant]

REACTIONS (2)
  - LOSS OF CONSCIOUSNESS [None]
  - RESPIRATORY DISTRESS [None]
